FAERS Safety Report 24801711 (Version 1)
Quarter: 2025Q1

REPORT INFORMATION
  Report Type: Other
  Country: US (occurrence: US)
  Receive Date: 20250102
  Receipt Date: 20250102
  Transmission Date: 20250408
  Serious: Yes (Other)
  Sender: NAVINTA LLC
  Company Number: US-Navinta LLC-000524

PATIENT
  Age: 53 Year
  Sex: Male

DRUGS (3)
  1. NICARDIPINE [Suspect]
     Active Substance: NICARDIPINE
     Indication: Blood pressure management
     Dosage: 15 MG/H
  2. ATORVASTATIN [Concomitant]
     Active Substance: ATORVASTATIN
     Indication: Hyperlipidaemia
  3. NICARDIPINE [Suspect]
     Active Substance: NICARDIPINE
     Indication: Blood pressure management
     Dosage: 2 MG/H

REACTIONS (1)
  - Hypoxia [Recovered/Resolved]
